FAERS Safety Report 24651536 (Version 1)
Quarter: 2024Q4

REPORT INFORMATION
  Report Type: Spontaneous
  Country: US (occurrence: US)
  Receive Date: 20241122
  Receipt Date: 20241122
  Transmission Date: 20250115
  Serious: Yes (Hospitalization, Other)
  Sender: ALKEM
  Company Number: US-ALKEM LABORATORIES LIMITED-US-ALKEM-2024-24395

PATIENT
  Age: 56 Year
  Sex: Female

DRUGS (1)
  1. LAMOTRIGINE [Suspect]
     Active Substance: LAMOTRIGINE
     Indication: Mood swings
     Dosage: UNK
     Route: 065

REACTIONS (3)
  - Acute psychosis [Unknown]
  - Suicidal ideation [Unknown]
  - Persistent genital arousal disorder [Recovered/Resolved]
